FAERS Safety Report 18292773 (Version 1)
Quarter: 2020Q3

REPORT INFORMATION
  Report Type: Spontaneous
  Country: GB (occurrence: GB)
  Receive Date: 20200922
  Receipt Date: 20200922
  Transmission Date: 20201103
  Serious: Yes (Disabling, Other)
  Sender: FDA-Public Use
  Company Number: GB-AUROBINDO-AUR-APL-2020-048616

PATIENT
  Age: 16 Year
  Sex: Female
  Weight: 63.5 kg

DRUGS (1)
  1. CO?AMOXICLAV [Suspect]
     Active Substance: AMOXICILLIN\CLAVULANATE POTASSIUM
     Indication: OROPHARYNGEAL PAIN
     Dosage: UNK
     Route: 048

REACTIONS (2)
  - Dizziness [Unknown]
  - Feeling abnormal [Unknown]

NARRATIVE: CASE EVENT DATE: 20200824
